FAERS Safety Report 14257125 (Version 1)
Quarter: 2017Q4

REPORT INFORMATION
  Report Type: Spontaneous
  Country: CH (occurrence: CH)
  Receive Date: 20171206
  Receipt Date: 20171206
  Transmission Date: 20180321
  Serious: Yes (Other)
  Sender: FDA-Public Use
  Company Number: CH-009507513-1703CHE010542

PATIENT
  Age: 28 Year
  Sex: Female

DRUGS (5)
  1. REMERON [Suspect]
     Active Substance: MIRTAZAPINE
     Indication: INTERVERTEBRAL DISC PROTRUSION
     Dosage: DOSAGE UNKNOWN
     Route: 048
     Dates: start: 201609, end: 201702
  2. LYRICA [Suspect]
     Active Substance: PREGABALIN
     Indication: INTERVERTEBRAL DISC PROTRUSION
     Dosage: DOSAGE UNKNOWN
     Route: 048
     Dates: start: 201609, end: 201702
  3. ZALDIAR [Suspect]
     Active Substance: ACETAMINOPHEN\TRAMADOL HYDROCHLORIDE
     Indication: INTERVERTEBRAL DISC PROTRUSION
     Dosage: DOSAGE UNKNOWN
     Route: 048
     Dates: start: 201009, end: 201702
  4. OMEPRAZOLE. [Suspect]
     Active Substance: OMEPRAZOLE
     Indication: INTERVERTEBRAL DISC PROTRUSION
     Dosage: DOSAGE UNKNOWN
     Route: 048
     Dates: start: 201609, end: 201702
  5. CORTICOSTEROIDS (UNSPECIFIED) [Suspect]
     Active Substance: UNSPECIFIED INGREDIENT
     Indication: INTERVERTEBRAL DISC PROTRUSION
     Dosage: DOSAGE UNKNOWN
     Route: 048
     Dates: start: 201609, end: 201702

REACTIONS (1)
  - Exposure during pregnancy [Unknown]

NARRATIVE: CASE EVENT DATE: 20170107
